FAERS Safety Report 9231985 (Version 1)
Quarter: 2013Q2

REPORT INFORMATION
  Report Type: Spontaneous
  Country: US (occurrence: US)
  Receive Date: 20130415
  Receipt Date: 20130415
  Transmission Date: 20140414
  Serious: No
  Sender: FDA-Public Use
  Company Number: US-PFIZER INC-2013116875

PATIENT
  Sex: 0

DRUGS (2)
  1. VENLAFAXINE HCL [Suspect]
     Dosage: UNK
  2. VENLAFAXINE XR [Suspect]
     Dosage: 150 MG, 2X/DAY

REACTIONS (2)
  - Change of bowel habit [Unknown]
  - Flatulence [Unknown]
